FAERS Safety Report 7138592-4 (Version None)
Quarter: 2010Q4

REPORT INFORMATION
  Report Type: 
  Country: None (occurrence: None)
  Receive Date: 20101206
  Receipt Date: 20101126
  Transmission Date: 20110411
  Serious: Yes (Hospitalization)
  Sender: FDA-Public Use
  Company Number: FR-PFIZER INC-FR-WYE-G05703010

PATIENT
  Sex: Female
  Weight: 29 kg

DRUGS (3)
  1. ADVIL [Suspect]
     Indication: COUGH
     Dosage: 1 DOSE FORM
     Route: 048
     Dates: start: 20100212, end: 20100212
  2. ZITROMAX [Suspect]
     Indication: COUGH
     Dosage: 600 MG, 1X/DAY
     Route: 048
     Dates: start: 20100212, end: 20100212
  3. HELICIDINE [Suspect]
     Indication: COUGH
     Dosage: 15 ML, 1X/DAY
     Route: 048
     Dates: start: 20100212, end: 20100212

REACTIONS (1)
  - CYTOLYTIC HEPATITIS [None]
